FAERS Safety Report 21079322 (Version 10)
Quarter: 2024Q1

REPORT INFORMATION
  Report Type: Spontaneous
  Country: DE (occurrence: DE)
  Receive Date: 20220714
  Receipt Date: 20240220
  Transmission Date: 20240409
  Serious: Yes (Life-Threatening, Hospitalization, Other)
  Sender: FDA-Public Use
  Company Number: DE-002147023-NVSC2019DE105910

PATIENT
  Age: 79 Year
  Sex: Female
  Weight: 58 kg

DRUGS (25)
  1. LETROZOLE [Suspect]
     Active Substance: LETROZOLE
     Indication: Breast cancer metastatic
     Dosage: 2.5 MILLIGRAM, ONCE A DAY, (QD)
     Route: 048
     Dates: start: 20190704, end: 20190819
  2. FULVESTRANT [Suspect]
     Active Substance: FULVESTRANT
     Indication: Product used for unknown indication
     Dosage: UNK
     Route: 065
  3. KISQALI [Suspect]
     Active Substance: RIBOCICLIB
     Indication: Breast cancer metastatic
     Dosage: 600 MILLIGRAM, ONCE A DAY ((ADMINISTRATION SCHEME 21 DAYS INTAKE, 7 DAYS PAUSE) )
     Route: 048
     Dates: start: 20190704, end: 20190717
  4. KISQALI [Suspect]
     Active Substance: RIBOCICLIB
     Dosage: 400 MILLIGRAM, ONCE A DAY ((ADMINISTRATION SCHEME 21 DAYS INTAKE, 7 DAYS PAUSE) )
     Route: 048
     Dates: start: 20190808, end: 20190808
  5. PALBOCICLIB [Suspect]
     Active Substance: PALBOCICLIB
     Indication: Breast cancer metastatic
     Dosage: 100 MILLIGRAM, ONCE A DAY,
     Route: 065
     Dates: start: 20211111
  6. PALBOCICLIB [Suspect]
     Active Substance: PALBOCICLIB
     Dosage: 100 MILLIGRAM, ONCE A DAY,
     Route: 065
     Dates: start: 20200114, end: 20200601
  7. PALBOCICLIB [Suspect]
     Active Substance: PALBOCICLIB
     Dosage: 100 MILLIGRAM, ONCE A DAY,
     Route: 065
     Dates: start: 20200603, end: 20200728
  8. PALBOCICLIB [Suspect]
     Active Substance: PALBOCICLIB
     Dosage: 100 MILLIGRAM, ONCE A DAY,
     Route: 065
     Dates: start: 20200812, end: 20200907
  9. PALBOCICLIB [Suspect]
     Active Substance: PALBOCICLIB
     Dosage: 100 MILLIGRAM, ONCE A DAY,
     Route: 048
     Dates: start: 20200909, end: 20201103
  10. PALBOCICLIB [Suspect]
     Active Substance: PALBOCICLIB
     Dosage: 75 MILLIGRAM, FOUR TIMES/DAY
     Route: 048
     Dates: start: 20221116, end: 20221129
  11. PALBOCICLIB [Suspect]
     Active Substance: PALBOCICLIB
     Dosage: 100 MILLIGRAM, ONCE A DAY,
     Route: 065
     Dates: start: 20200909
  12. PALBOCICLIB [Suspect]
     Active Substance: PALBOCICLIB
     Dosage: 75 MILLIGRAM, ONCE A DAY(CYCLICAL)
     Route: 048
     Dates: start: 20220901
  13. PALBOCICLIB [Suspect]
     Active Substance: PALBOCICLIB
     Dosage: 100 MILLIGRAM, ONCE A DAY,
     Route: 048
     Dates: start: 20200601
  14. PALBOCICLIB [Suspect]
     Active Substance: PALBOCICLIB
     Dosage: 100 MILLIGRAM, ONCE A DAY,
     Route: 048
     Dates: start: 20211111, end: 20220823
  15. TORSEMIDE [Suspect]
     Active Substance: TORSEMIDE
     Indication: Atrial fibrillation
     Dosage: 10 MILLIGRAM, ONCE A DAY
     Route: 065
     Dates: start: 20200727, end: 20220901
  16. TORSEMIDE [Suspect]
     Active Substance: TORSEMIDE
     Indication: Cardiac failure
  17. TORSEMIDE [Suspect]
     Active Substance: TORSEMIDE
     Indication: Pleural effusion
  18. TORSEMIDE [Suspect]
     Active Substance: TORSEMIDE
     Indication: Oedema peripheral
  19. ASPIRIN [Concomitant]
     Active Substance: ASPIRIN
     Indication: Product used for unknown indication
     Dosage: 100 MILLIGRAM, ONCE A DAY
     Route: 065
     Dates: start: 2000
  20. BISOPROLOL FUMARATE [Concomitant]
     Active Substance: BISOPROLOL FUMARATE
     Indication: Product used for unknown indication
     Dosage: 0.5 DOSAGE FORM, ONCE A DAY, (10/25 MG)
     Route: 065
     Dates: start: 2000
  21. CALCIUM [Concomitant]
     Active Substance: CALCIUM
     Indication: Product used for unknown indication
     Dosage: 400 MILLIGRAM, ONCE A DAY
     Route: 065
     Dates: start: 2016
  22. CHOLECALCIFEROL [Concomitant]
     Active Substance: CHOLECALCIFEROL
     Indication: Product used for unknown indication
     Dosage: 20000 INTERNATIONAL UNIT, (ONCE A MONTH, QMO, MONTHLY)
     Route: 065
     Dates: start: 2016
  23. LEVOTHYROXINE [Concomitant]
     Active Substance: LEVOTHYROXINE\LEVOTHYROXINE SODIUM
     Indication: Product used for unknown indication
     Dosage: 88 MICROGRAM, ONCE A DAY
     Route: 065
     Dates: start: 2011
  24. Novalgin [Concomitant]
     Indication: Product used for unknown indication
     Dosage: 500 MILLIGRAM, (PRN)
     Route: 065
     Dates: start: 201904
  25. AMLODIPINE BESYLATE\OLMESARTAN MEDOXOMIL [Concomitant]
     Active Substance: AMLODIPINE BESYLATE\OLMESARTAN MEDOXOMIL
     Indication: Product used for unknown indication
     Dosage: 40 MILLIGRAM, ONCE A DAY
     Route: 065
     Dates: start: 2019

REACTIONS (35)
  - Renal failure [Not Recovered/Not Resolved]
  - Neutropenia [Recovered/Resolved]
  - Thrombocytopenia [Recovered/Resolved]
  - Asthenia [Unknown]
  - C-reactive protein increased [Not Recovered/Not Resolved]
  - General physical health deterioration [Recovered/Resolved]
  - Leukopenia [Recovered/Resolved]
  - Vomiting [Recovered/Resolved]
  - Nausea [Recovered/Resolved]
  - Glomerular filtration rate decreased [Recovering/Resolving]
  - Nephrolithiasis [Recovered/Resolved]
  - Hyponatraemia [Recovering/Resolving]
  - Cardiac failure [Not Recovered/Not Resolved]
  - Electrocardiogram QT prolonged [Recovered/Resolved]
  - Hypertension [Recovered/Resolved]
  - Atrial fibrillation [Recovering/Resolving]
  - Concomitant disease aggravated [Recovering/Resolving]
  - Renal impairment [Not Recovered/Not Resolved]
  - Urinary retention [Not Recovered/Not Resolved]
  - Osteoarthritis [Not Recovered/Not Resolved]
  - Anaemia [Not Recovered/Not Resolved]
  - Dry skin [Recovering/Resolving]
  - Blood creatinine increased [Not Recovered/Not Resolved]
  - Cystitis [Recovered/Resolved]
  - Dyspnoea [Not Recovered/Not Resolved]
  - Eastern Cooperative Oncology Group performance status worsened [Recovered/Resolved]
  - Bronchitis [Recovered/Resolved]
  - Blood glucose increased [Recovering/Resolving]
  - Pleural effusion [Not Recovered/Not Resolved]
  - Urinary tract infection [Not Recovered/Not Resolved]
  - Infection [Recovered/Resolved]
  - Oedema peripheral [Recovering/Resolving]
  - Blood thyroid stimulating hormone increased [Recovered/Resolved]
  - Blood alkaline phosphatase increased [Recovered/Resolved]
  - Product use in unapproved indication [Unknown]

NARRATIVE: CASE EVENT DATE: 20190716
